FAERS Safety Report 5455548-8 (Version None)
Quarter: 2007Q3

REPORT INFORMATION
  Report Type: 
  Country: None (occurrence: None)
  Receive Date: 20070918
  Receipt Date: 20070228
  Transmission Date: 20080115
  Serious: Yes (Other)
  Sender: FDA-Public Use
  Company Number: US-ASTRAZENECA-2006UW21828

PATIENT
  Sex: Female
  Weight: 145.5 kg

DRUGS (7)
  1. SEROQUEL [Suspect]
     Indication: SCHIZOPHRENIA
     Route: 048
  2. SEROQUEL [Suspect]
     Indication: DEPRESSION
     Route: 048
  3. SEROQUEL [Suspect]
     Indication: BIPOLAR DISORDER
     Route: 048
  4. SLIM FAST [Concomitant]
     Indication: WEIGHT CONTROL
  5. DEXATRIM [Concomitant]
     Indication: WEIGHT CONTROL
  6. NAVANE [Concomitant]
  7. THORAZINE [Concomitant]

REACTIONS (2)
  - INSULIN-REQUIRING TYPE II DIABETES MELLITUS [None]
  - PANCREATITIS [None]
